FAERS Safety Report 20069046 (Version 3)
Quarter: 2023Q4

REPORT INFORMATION
  Report Type: Spontaneous
  Country: US (occurrence: US)
  Receive Date: 20211115
  Receipt Date: 20231010
  Transmission Date: 20240110
  Serious: Yes (Hospitalization, Other)
  Sender: FDA-Public Use
  Company Number: US-009507513-2111USA004315

PATIENT
  Age: 82 Year
  Sex: Female

DRUGS (7)
  1. KEYTRUDA [Suspect]
     Active Substance: PEMBROLIZUMAB
  2. LENVATINIB MESYLATE [Suspect]
     Active Substance: LENVATINIB MESYLATE
     Indication: Endometrial cancer
     Dosage: 8 MILLIGRAM, ONCE DAILY
     Route: 048
     Dates: start: 20211029, end: 20211030
  3. LENVATINIB MESYLATE [Suspect]
     Active Substance: LENVATINIB MESYLATE
     Dosage: 20 MILLIGRAM, ONCE DAILY
     Route: 048
     Dates: start: 20211029, end: 20211030
  4. LENVATINIB MESYLATE [Suspect]
     Active Substance: LENVATINIB MESYLATE
     Dosage: 20 MILLIGRAM, ONCE DAILY
     Route: 048
     Dates: start: 20211123, end: 20211202
  5. LENVATINIB MESYLATE [Suspect]
     Active Substance: LENVATINIB MESYLATE
     Dosage: 10 MILLIGRAM, ONCE DAILY
     Route: 048
     Dates: start: 20220215, end: 20220304
  6. LENVATINIB MESYLATE [Suspect]
     Active Substance: LENVATINIB MESYLATE
     Dosage: 8 MILLIGRAM, ONCE DAILY
     Dates: start: 20220408, end: 20220504
  7. LENVATINIB MESYLATE [Suspect]
     Active Substance: LENVATINIB MESYLATE
     Dosage: 4 MILLIGRAM, ONCE DAILY
     Route: 048
     Dates: end: 20230926

REACTIONS (13)
  - Cardiac failure congestive [Unknown]
  - Thrombosis [Unknown]
  - Asthenia [Unknown]
  - Weight decreased [Unknown]
  - Decreased appetite [Unknown]
  - Contusion [Unknown]
  - Skin discolouration [Unknown]
  - Depression [Unknown]
  - Decreased activity [Unknown]
  - Blood thyroid stimulating hormone decreased [Unknown]
  - Product use issue [Unknown]
  - Product use issue [Unknown]
  - Product use issue [Unknown]

NARRATIVE: CASE EVENT DATE: 20211030
